FAERS Safety Report 7457505-9 (Version None)
Quarter: 2011Q2

REPORT INFORMATION
  Report Type: 
  Country: None (occurrence: None)
  Receive Date: 20110502
  Receipt Date: 20110502
  Transmission Date: 20111010
  Serious: Yes (Death, Life-Threatening, Other)
  Sender: FDA-Public Use
  Company Number: None

PATIENT
  Sex: Male
  Weight: 90.7194 kg

DRUGS (1)
  1. LEVOTHYROXINE SODIUM [Suspect]
     Indication: HYPOTHYROIDISM
     Dosage: 150 MICROGRAMS DAILY MOUTH
     Route: 048
     Dates: start: 20110220, end: 20110411

REACTIONS (7)
  - WEIGHT INCREASED [None]
  - MEMORY IMPAIRMENT [None]
  - PRODUCT SUBSTITUTION ISSUE [None]
  - CONFUSIONAL STATE [None]
  - BRADYCARDIA [None]
  - VISUAL IMPAIRMENT [None]
  - MYXOEDEMA [None]
